FAERS Safety Report 6062561-9 (Version None)
Quarter: 2009Q1

REPORT INFORMATION
  Report Type: 
  Country: None (occurrence: None)
  Receive Date: 20090203
  Receipt Date: 20090127
  Transmission Date: 20090719
  Serious: Yes (Other)
  Sender: FDA-Public Use
  Company Number: CA-ALLERGAN-0901131US

PATIENT
  Age: 50 Year
  Sex: Female

DRUGS (3)
  1. ALPHAGAN P [Suspect]
     Indication: GLAUCOMA
     Dosage: 1 GTT, BID
     Route: 047
  2. AZOPT [Concomitant]
  3. TRAVATAN [Concomitant]

REACTIONS (4)
  - FATIGUE [None]
  - HEART RATE IRREGULAR [None]
  - HYPOTENSION [None]
  - MALAISE [None]
